FAERS Safety Report 17209979 (Version 1)
Quarter: 2019Q4

REPORT INFORMATION
  Report Type: Report from Study
  Country: IT (occurrence: IT)
  Receive Date: 20191227
  Receipt Date: 20191227
  Transmission Date: 20200122
  Serious: Yes (Hospitalization)
  Sender: FDA-Public Use
  Company Number: IT-MYLANLABS-2019M1127643

PATIENT
  Age: 77 Year
  Sex: Male

DRUGS (4)
  1. VOLTAREN [Interacting]
     Active Substance: DICLOFENAC SODIUM
     Indication: PRODUCT USED FOR UNKNOWN INDICATION
     Dosage: UNK
     Route: 030
  2. MUSCORIL [Concomitant]
     Active Substance: THIOCOLCHICOSIDE
     Indication: MUSCLE CONTRACTURE
     Dosage: UNK
     Route: 030
  3. TORA-DOL [Interacting]
     Active Substance: KETOROLAC TROMETHAMINE
     Indication: PAIN
     Dosage: 14 GTT DROPS, QD
     Route: 048
  4. TICLOPIDINE [Suspect]
     Active Substance: TICLOPIDINE
     Indication: ISCHAEMIC CARDIOMYOPATHY
     Dosage: UNK
     Dates: start: 20190101

REACTIONS (2)
  - Haematochezia [Recovering/Resolving]
  - Drug interaction [Recovering/Resolving]

NARRATIVE: CASE EVENT DATE: 20190827
